FAERS Safety Report 22057928 (Version 1)
Quarter: 2023Q1

REPORT INFORMATION
  Report Type: Spontaneous
  Country: DE (occurrence: DE)
  Receive Date: 20230303
  Receipt Date: 20230303
  Transmission Date: 20230418
  Serious: Yes (Disabling, Other)
  Sender: FDA-Public Use
  Company Number: DE-RECORDATI RARE DISEASE INC.-2023001104

PATIENT

DRUGS (38)
  1. COSMEGEN [Suspect]
     Active Substance: DACTINOMYCIN
     Indication: Ewing^s sarcoma
     Dosage: 1 MILLIGRAM, BID (CHEMO1)
     Dates: start: 19890606, end: 19890612
  2. COSMEGEN [Suspect]
     Active Substance: DACTINOMYCIN
     Dosage: 1 MILLIGRAM, TID (CHEMO 2)
     Dates: start: 19890628, end: 19890703
  3. COSMEGEN [Suspect]
     Active Substance: DACTINOMYCIN
     Dosage: CHEMO 3
     Dates: start: 19890720, end: 19890725
  4. COSMEGEN [Suspect]
     Active Substance: DACTINOMYCIN
     Dosage: 1 MILLIGRAM, TID (CHEMO 5)
     Dates: start: 19890915, end: 19890919
  5. COSMEGEN [Suspect]
     Active Substance: DACTINOMYCIN
     Dosage: 1 MILLIGRAM, TID (CHEMO 6)
     Dates: start: 19891009, end: 19891013
  6. COSMEGEN [Suspect]
     Active Substance: DACTINOMYCIN
     Dosage: 1 MILLIGRAM, TID (CHEMO 11)
     Dates: start: 19900214, end: 19900217
  7. ETOPOSIDE [Suspect]
     Active Substance: ETOPOSIDE
     Indication: Ewing^s sarcoma
     Dosage: 400 MILLIGRAM, TID (CHEMO 4)
     Dates: start: 19890826, end: 19890830
  8. ETOPOSIDE [Suspect]
     Active Substance: ETOPOSIDE
     Dosage: 400 MILLIGRAM, TID (CHEMO 6)
     Dates: start: 19891009, end: 19891013
  9. ETOPOSIDE [Suspect]
     Active Substance: ETOPOSIDE
     Dosage: 400 MILLIGRAM, TID (CHEMO 8)
     Dates: start: 19891129, end: 19891203
  10. ETOPOSIDE [Suspect]
     Active Substance: ETOPOSIDE
     Dosage: 400 MILLIGRAM, TID (CHEMO 10)
     Dates: start: 19900119, end: 19900122
  11. ETOPOSIDE [Suspect]
     Active Substance: ETOPOSIDE
     Dosage: 1X150MG + 2X400MG (CHEMO 12)
     Dates: start: 19900309, end: 19900313
  12. CYCLOPHOSPHAMIDE [Suspect]
     Active Substance: CYCLOPHOSPHAMIDE
     Indication: Ewing^s sarcoma
     Dosage: 800 MILLIGRAM, TID (CHEMO 10)
     Dates: start: 19900119, end: 19900122
  13. CYCLOPHOSPHAMIDE [Suspect]
     Active Substance: CYCLOPHOSPHAMIDE
     Dosage: 800 MILLIGRAM, TID (CHEMO 11)
     Dates: start: 19900214, end: 19900217
  14. IFOSFAMIDE [Suspect]
     Active Substance: IFOSFAMIDE
     Indication: Ewing^s sarcoma
     Dosage: 3000 MILLIGRAM, QID (CHEMO 1)
     Dates: start: 19890606, end: 19890612
  15. IFOSFAMIDE [Suspect]
     Active Substance: IFOSFAMIDE
     Dosage: 3000 MILLIGRAM, TID  (CHEMO 2)
     Dates: start: 19890628, end: 19890703
  16. IFOSFAMIDE [Suspect]
     Active Substance: IFOSFAMIDE
     Dosage: CHEMO 3
     Dates: start: 19890720, end: 19890725
  17. IFOSFAMIDE [Suspect]
     Active Substance: IFOSFAMIDE
     Dosage: 3000 MILLIGRAM, TID  (CHEMO 4)
     Dates: start: 19890826, end: 19890830
  18. IFOSFAMIDE [Suspect]
     Active Substance: IFOSFAMIDE
     Dosage: 3000 MILLIGRAM, TID (CHEMO 5)
     Dates: start: 19890915, end: 19890919
  19. IFOSFAMIDE [Suspect]
     Active Substance: IFOSFAMIDE
     Dosage: 3000 MILLIGRAM, TID  (CHEMO 6)
     Dates: start: 19891009, end: 19891013
  20. IFOSFAMIDE [Suspect]
     Active Substance: IFOSFAMIDE
     Dosage: 3000 MILLIGRAM, TID  (CHEMO 7)
     Dates: start: 19891103, end: 19891107
  21. IFOSFAMIDE [Suspect]
     Active Substance: IFOSFAMIDE
     Dosage: 2000 MILLIGRAM, BID (CHEMO 8)
     Dates: start: 19891129, end: 19891203
  22. IFOSFAMIDE [Suspect]
     Active Substance: IFOSFAMIDE
     Dosage: CHEMO 9
     Dates: start: 19891226, end: 19891230
  23. IFOSFAMIDE [Suspect]
     Active Substance: IFOSFAMIDE
     Dosage: 3000 MILLIGRAM, QID (CHEMO 12)
     Dates: start: 19900309, end: 19900313
  24. VINCRISTINE [Suspect]
     Active Substance: VINCRISTINE
     Indication: Ewing^s sarcoma
     Dosage: 2 MILLIGRAM, QD (CHEMO 1)
     Dates: start: 19890606, end: 19890612
  25. VINCRISTINE [Suspect]
     Active Substance: VINCRISTINE
     Dosage: 2 MILLIGRAM, QD (CHEMO 2)
     Dates: start: 19890628, end: 19890703
  26. VINCRISTINE [Suspect]
     Active Substance: VINCRISTINE
     Dosage: CHEMO 3
     Dates: start: 19890720, end: 19890725
  27. VINCRISTINE [Suspect]
     Active Substance: VINCRISTINE
     Dosage: 2 MILLIGRAM, QD (CHEMO 4)
     Dates: start: 19890826, end: 19890830
  28. VINCRISTINE [Suspect]
     Active Substance: VINCRISTINE
     Dosage: 1.5 MILLIGRAM, QD (CHEMO 5)
     Dates: start: 19890915, end: 19890919
  29. VINCRISTINE [Suspect]
     Active Substance: VINCRISTINE
     Dosage: 1.5 MILLIGRAM, QD (CHEMO 7)
     Dates: start: 19891103, end: 19891107
  30. VINCRISTINE [Suspect]
     Active Substance: VINCRISTINE
     Dosage: 2 MILLIGRAM, QD (CHEMO 8)
     Dates: start: 19891129, end: 19891203
  31. VINCRISTINE [Suspect]
     Active Substance: VINCRISTINE
     Dosage: CHEMO 9
     Dates: start: 19891226, end: 19891230
  32. VINCRISTINE [Suspect]
     Active Substance: VINCRISTINE
     Dosage: 2 MILLIGRAM, QD (CHEMO 10)
     Dates: start: 19900119, end: 19900122
  33. VINCRISTINE [Suspect]
     Active Substance: VINCRISTINE
     Dosage: 1 MILLIGRAM, QD (CHEMO 11)
     Dates: start: 19900214, end: 19900217
  34. ADRIAMYCIN [Suspect]
     Active Substance: DOXORUBICIN HYDROCHLORIDE
     Indication: Ewing^s sarcoma
     Dosage: 60 MILLIGRAM, BID (CHEMO 1)
     Dates: start: 19890606, end: 19890612
  35. ADRIAMYCIN [Suspect]
     Active Substance: DOXORUBICIN HYDROCHLORIDE
     Dosage: 60 MILLIGRAM, BID (CHEMO 2)
     Dates: start: 19890628, end: 19890703
  36. ADRIAMYCIN [Suspect]
     Active Substance: DOXORUBICIN HYDROCHLORIDE
     Dosage: CHEMO 3
     Dates: start: 19890720, end: 19890725
  37. ADRIAMYCIN [Suspect]
     Active Substance: DOXORUBICIN HYDROCHLORIDE
     Dosage: 60 MILLIGRAM, BID (CHEMO 4)
     Dates: start: 19890826, end: 19890830
  38. ADRIAMYCIN [Suspect]
     Active Substance: DOXORUBICIN HYDROCHLORIDE
     Dosage: 60 MILLIGRAM, BID (CHEMO 5)
     Dates: start: 19890915, end: 19890919

REACTIONS (11)
  - Disorientation [Recovered/Resolved with Sequelae]
  - Seizure [Unknown]
  - Hallucination [Unknown]
  - Nausea [Recovered/Resolved with Sequelae]
  - Confusional state [Unknown]
  - Headache [Not Recovered/Not Resolved]
  - Asthenia [Not Recovered/Not Resolved]
  - Altered state of consciousness [Unknown]
  - Fatigue [Not Recovered/Not Resolved]
  - Vomiting [Unknown]
  - Muscle spasms [Unknown]
